FAERS Safety Report 12160652 (Version 1)
Quarter: 2016Q1

REPORT INFORMATION
  Report Type: Spontaneous
  Country: US (occurrence: US)
  Receive Date: 20160308
  Receipt Date: 20160308
  Transmission Date: 20160526
  Serious: Yes (Other)
  Sender: FDA-Public Use
  Company Number: US-SA-2016SA013967

PATIENT
  Sex: Female

DRUGS (19)
  1. ADDERALL [Concomitant]
     Active Substance: AMPHETAMINE ASPARTATE\AMPHETAMINE SULFATE\DEXTROAMPHETAMINE SACCHARATE\DEXTROAMPHETAMINE SULFATE
  2. NAMENDA [Concomitant]
     Active Substance: MEMANTINE HYDROCHLORIDE
  3. GABAPENTIN. [Concomitant]
     Active Substance: GABAPENTIN
  4. MACRODANTIN [Concomitant]
     Active Substance: NITROFURANTOIN
  5. FENOFIBRATE. [Concomitant]
     Active Substance: FENOFIBRATE
  6. MOBIC [Concomitant]
     Active Substance: MELOXICAM
  7. VESICARE [Concomitant]
     Active Substance: SOLIFENACIN SUCCINATE
  8. CELEXA [Concomitant]
     Active Substance: CITALOPRAM HYDROBROMIDE
  9. IBUPROFEN. [Concomitant]
     Active Substance: IBUPROFEN
  10. AUBAGIO [Suspect]
     Active Substance: TERIFLUNOMIDE
     Indication: MULTIPLE SCLEROSIS
     Route: 048
  11. INDERAL [Concomitant]
     Active Substance: PROPRANOLOL HYDROCHLORIDE
  12. IMITREX [Concomitant]
     Active Substance: SUMATRIPTAN SUCCINATE
  13. NORVASC [Concomitant]
     Active Substance: AMLODIPINE BESYLATE
  14. RIZATRIPTAN BENZOATE. [Concomitant]
     Active Substance: RIZATRIPTAN BENZOATE
  15. TIZANIDINE HYDROCHLORIDE. [Concomitant]
     Active Substance: TIZANIDINE HYDROCHLORIDE
  16. TOPAMAX [Concomitant]
     Active Substance: TOPIRAMATE
  17. VITAMIN D3 [Concomitant]
     Active Substance: CHOLECALCIFEROL
  18. VITAMIN D2 [Concomitant]
     Active Substance: ERGOCALCIFEROL
  19. SODIUM BICARBONATE. [Concomitant]
     Active Substance: SODIUM BICARBONATE

REACTIONS (8)
  - Contusion [Unknown]
  - Hypoaesthesia [Not Recovered/Not Resolved]
  - Paraesthesia [Not Recovered/Not Resolved]
  - Dizziness [Unknown]
  - Renal failure [Unknown]
  - Fall [Unknown]
  - Activities of daily living impaired [Unknown]
  - Kidney infection [Unknown]

NARRATIVE: CASE EVENT DATE: 201601
